FAERS Safety Report 25446748 (Version 1)
Quarter: 2025Q2

REPORT INFORMATION
  Report Type: Spontaneous
  Country: US (occurrence: None)
  Receive Date: 20250617
  Receipt Date: 20250617
  Transmission Date: 20250716
  Serious: No
  Sender: FDA-CTU
  Company Number: None

PATIENT
  Age: 84 Year

DRUGS (1)
  1. NOURIANZ [Suspect]
     Active Substance: ISTRADEFYLLINE
     Indication: Parkinson^s disease
     Dosage: 1 DAILY ORAL?
     Route: 048
     Dates: start: 20240325, end: 20250615

REACTIONS (1)
  - Death [None]

NARRATIVE: CASE EVENT DATE: 20250615
